FAERS Safety Report 7726821-5 (Version None)
Quarter: 2011Q3

REPORT INFORMATION
  Report Type: 
  Country: None (occurrence: None)
  Receive Date: 20110902
  Receipt Date: 20110825
  Transmission Date: 20111222
  Serious: Yes (Hospitalization)
  Sender: FDA-Public Use
  Company Number: JP-GLAXOSMITHKLINE-B0742786A

PATIENT
  Age: 10 Day

DRUGS (1)
  1. ZOVIRAX [Suspect]
     Indication: NEONATAL MUCOCUTANEOUS HERPES SIMPLEX
     Route: 065

REACTIONS (3)
  - RENAL FAILURE [None]
  - ACUTE HEPATIC FAILURE [None]
  - ANURIA [None]
